FAERS Safety Report 10382385 (Version 4)
Quarter: 2014Q4

REPORT INFORMATION
  Report Type: Spontaneous
  Country: BR (occurrence: BR)
  Receive Date: 20140813
  Receipt Date: 20141118
  Transmission Date: 20150528
  Serious: Yes (Disabling)
  Sender: FDA-Public Use
  Company Number: BR-UCBSA-2014008662

PATIENT
  Age: 52 Year
  Sex: Male

DRUGS (8)
  1. OMEPRAZOLE. [Suspect]
     Active Substance: OMEPRAZOLE
     Indication: PROPHYLAXIS
     Dosage: AS REQUIRED
     Route: 048
     Dates: start: 1999
  2. VIMOVO [Suspect]
     Active Substance: ESOMEPRAZOLE MAGNESIUM\NAPROXEN
     Indication: RHEUMATOID ARTHRITIS
     Dosage: 2XDIA
     Route: 048
     Dates: start: 2014, end: 2014
  3. CIMZIA [Suspect]
     Active Substance: CERTOLIZUMAB PEGOL
     Dosage: 200MG/ML EV 30 DAYS
     Dates: start: 201409, end: 2014
  4. CIMZIA [Suspect]
     Active Substance: CERTOLIZUMAB PEGOL
     Indication: RHEUMATOID ARTHRITIS
     Dosage: 200MG/ML EV 15 DAYS
     Route: 058
     Dates: start: 201405, end: 20140627
  5. HUMIRA [Concomitant]
     Active Substance: ADALIMUMAB
     Indication: RHEUMATOID ARTHRITIS
     Dosage: UNK
     Dates: end: 2014
  6. CAPTOPRIL. [Concomitant]
     Active Substance: CAPTOPRIL
     Indication: HYPERTENSION
     Dosage: 50MG
     Route: 048
     Dates: start: 1979
  7. METFORMIN [Suspect]
     Active Substance: METFORMIN HYDROCHLORIDE
     Indication: DIABETES MELLITUS
     Dosage: 850MG DAILY
     Route: 048
     Dates: start: 1999
  8. GLIBENCLAMIDE [Concomitant]
     Active Substance: GLYBURIDE
     Indication: DIABETES MELLITUS
     Dosage: 5MG
     Route: 048
     Dates: start: 1994

REACTIONS (8)
  - Abasia [Unknown]
  - Neck pain [Not Recovered/Not Resolved]
  - Spinal pain [Recovered/Resolved]
  - Pain in extremity [Recovered/Resolved]
  - Muscular weakness [Recovered/Resolved]
  - Drug dose omission [Unknown]
  - Medication error [Unknown]
  - Arthralgia [Unknown]

NARRATIVE: CASE EVENT DATE: 2014
